FAERS Safety Report 5761999-4 (Version None)
Quarter: 2008Q2

REPORT INFORMATION
  Report Type: 
  Country: None (occurrence: None)
  Receive Date: 20080603
  Receipt Date: 20080521
  Transmission Date: 20081010
  Serious: Yes (Other)
  Sender: FDA-Public Use
  Company Number: POMP-1000156

PATIENT
  Age: 7 Month
  Sex: Male
  Weight: 9 kg

DRUGS (6)
  1. MYOZYME [Suspect]
     Indication: GLYCOGEN STORAGE DISEASE TYPE II
     Dosage: 15 MG/KG, QW, INTRAVENOUS, 10 MG/KG, QW, INTRAVENOUS, 20 MG/KG, Q2W, INTRAVENOUS
     Route: 042
     Dates: start: 20071121, end: 20080430
  2. MYOZYME [Suspect]
     Indication: GLYCOGEN STORAGE DISEASE TYPE II
     Dosage: 15 MG/KG, QW, INTRAVENOUS, 10 MG/KG, QW, INTRAVENOUS, 20 MG/KG, Q2W, INTRAVENOUS
     Route: 042
     Dates: start: 20080516, end: 20080521
  3. MYOZYME [Suspect]
     Indication: GLYCOGEN STORAGE DISEASE TYPE II
     Dosage: 15 MG/KG, QW, INTRAVENOUS, 10 MG/KG, QW, INTRAVENOUS, 20 MG/KG, Q2W, INTRAVENOUS
     Route: 042
     Dates: start: 20080528
  4. VENA (DIOHENHYDRAMINE LAURILSULFATE) [Concomitant]
  5. PREDNISOLONE [Concomitant]
  6. SOLU-MEDROL [Concomitant]

REACTIONS (16)
  - BLOOD PRESSURE DIASTOLIC DECREASED [None]
  - BODY TEMPERATURE DECREASED [None]
  - COUGH [None]
  - DRUG HYPERSENSITIVITY [None]
  - EYELID OEDEMA [None]
  - FACE OEDEMA [None]
  - GENERALISED ERYTHEMA [None]
  - HEART RATE INCREASED [None]
  - IRRITABILITY [None]
  - OXYGEN SATURATION DECREASED [None]
  - RASH PAPULAR [None]
  - RESPIRATORY RATE INCREASED [None]
  - RHINORRHOEA [None]
  - TACHYPNOEA [None]
  - URTICARIA [None]
  - WHEEZING [None]
